FAERS Safety Report 7177402-6 (Version None)
Quarter: 2010Q4

REPORT INFORMATION
  Report Type: 
  Country: None (occurrence: None)
  Receive Date: 20101220
  Receipt Date: 20101207
  Transmission Date: 20110411
  Serious: Yes (Hospitalization)
  Sender: FDA-Public Use
  Company Number: US-ELI_LILLY_AND_COMPANY-US201012002180

PATIENT
  Sex: Female

DRUGS (9)
  1. FORTEO [Suspect]
     Indication: OSTEOPOROSIS
     Dosage: 20 UG, DAILY (1/D)
  2. ENBREL [Concomitant]
  3. TOPRAL [Concomitant]
  4. NORVASC [Concomitant]
  5. SYNTHROID [Concomitant]
  6. VITAMIN D [Concomitant]
  7. MULTI-VITAMIN [Concomitant]
  8. CALTRATE [Concomitant]
  9. AZATHIOPRINE [Concomitant]
     Indication: RHEUMATOID ARTHRITIS

REACTIONS (9)
  - BLOOD PRESSURE INCREASED [None]
  - DECREASED APPETITE [None]
  - DEPRESSION [None]
  - FATIGUE [None]
  - HEART RATE INCREASED [None]
  - MYOCARDIAL INFARCTION [None]
  - TENSION [None]
  - VASCULAR OCCLUSION [None]
  - WEIGHT DECREASED [None]
